FAERS Safety Report 8078050-6 (Version None)
Quarter: 2012Q1

REPORT INFORMATION
  Report Type: 
  Country: None (occurrence: None)
  Receive Date: 20120127
  Receipt Date: 20110107
  Transmission Date: 20120608
  Serious: No
  Sender: FDA-Public Use
  Company Number: US-ABBOTT-11P-163-0696011-00

PATIENT
  Sex: Female
  Weight: 63.56 kg

DRUGS (3)
  1. MELOXICAM [Concomitant]
     Indication: RHEUMATOID ARTHRITIS
  2. HUMIRA [Suspect]
     Indication: RHEUMATOID ARTHRITIS
     Route: 058
     Dates: start: 20101101
  3. PROPRANOLOL [Concomitant]
     Indication: HYPERTENSION
     Dosage: DOSE NOT REPORTED.

REACTIONS (3)
  - ARTHRALGIA [None]
  - JOINT SWELLING [None]
  - SYNOVIAL CYST [None]
